FAERS Safety Report 7726010-4 (Version None)
Quarter: 2011Q3

REPORT INFORMATION
  Report Type: 
  Country: None (occurrence: None)
  Receive Date: 20110902
  Receipt Date: 20110826
  Transmission Date: 20111222
  Serious: Yes (Hospitalization)
  Sender: FDA-Public Use
  Company Number: JP-EISAI INC-E7389-01351-SPO-JP

PATIENT
  Age: 76 Year
  Sex: Female

DRUGS (2)
  1. HALAVEN [Suspect]
     Indication: BREAST CANCER
     Route: 041
     Dates: start: 20110729, end: 20110729
  2. AMLODIPINE [Concomitant]
     Indication: HYPERTENSION
     Route: 048

REACTIONS (3)
  - HYPERTENSION [None]
  - MALAISE [None]
  - DIZZINESS [None]
